FAERS Safety Report 4449395-3 (Version None)
Quarter: 2004Q3

REPORT INFORMATION
  Report Type: 
  Country: None (occurrence: None)
  Receive Date: 20040914
  Receipt Date: 20040901
  Transmission Date: 20050211
  Serious: No
  Sender: FDA-Public Use
  Company Number: 2004UW18452

PATIENT
  Age: 20 Year
  Sex: Female
  Weight: 68.0396 kg

DRUGS (10)
  1. SEROQUEL [Suspect]
     Indication: ABNORMAL BEHAVIOUR
     Dosage: 25 MG BID
  2. SEROQUEL [Suspect]
     Indication: PSYCHOTIC DISORDER
     Dosage: 25 MG BID
  3. SEROQUEL [Suspect]
     Indication: ABNORMAL BEHAVIOUR
     Dosage: 50 MG BID
  4. SEROQUEL [Suspect]
     Indication: PSYCHOTIC DISORDER
     Dosage: 50 MG BID
  5. SEROQUEL [Suspect]
     Indication: ABNORMAL BEHAVIOUR
     Dosage: 400 MG DAILY
  6. SEROQUEL [Suspect]
     Indication: PSYCHOTIC DISORDER
     Dosage: 400 MG DAILY
  7. SEROQUEL [Suspect]
     Indication: ABNORMAL BEHAVIOUR
     Dosage: 600 MG DAILY
  8. SEROQUEL [Suspect]
     Indication: PSYCHOTIC DISORDER
     Dosage: 600 MG DAILY
  9. ATIVAN [Concomitant]
  10. LAMICTAL [Concomitant]

REACTIONS (3)
  - ATAXIA [None]
  - FALL [None]
  - TREMOR [None]
